FAERS Safety Report 6945004-X (Version None)
Quarter: 2010Q3

REPORT INFORMATION
  Report Type: 
  Country: None (occurrence: None)
  Receive Date: 20100827
  Receipt Date: 20100813
  Transmission Date: 20110219
  Serious: Yes (Hospitalization, Other)
  Sender: FDA-Public Use
  Company Number: PHHY2010CA50408

PATIENT
  Sex: Female

DRUGS (21)
  1. SANDOSTATIN LAR [Suspect]
     Indication: NEOPLASM
     Dosage: 30 MG EVERY 4 WEEKS
     Route: 030
     Dates: start: 20100507
  2. PANTOPRAZOLE [Concomitant]
  3. POTASSIUM CHLORIDE [Concomitant]
     Dosage: UNK
  4. FLURAZEPAM [Concomitant]
  5. CITALOPRAM [Concomitant]
  6. ACETAMINOPHEN [Concomitant]
  7. SOTALOL HCL [Concomitant]
  8. ATORVASTATIN [Concomitant]
  9. BRICANYL [Concomitant]
  10. OXYCODONE HCL [Concomitant]
  11. AVAPRO [Concomitant]
  12. FERROUS SULFATE [Concomitant]
  13. NEUPOGEN [Concomitant]
  14. EMEND [Concomitant]
     Dosage: 125 MG ONE GOUR BEFORE CHEMOTHERAPY, 80 MG QD ON DAY 2 AND 3
  15. DEXAMETHASONE [Concomitant]
  16. NOVO-LOPERAMIDE [Concomitant]
  17. CHOLESTYRAMINE RESIN [Concomitant]
     Indication: DIARRHOEA
  18. BETADERM [Concomitant]
  19. CYCLOBENZAPRINE [Concomitant]
  20. PROCHLORPERAZINE [Concomitant]
     Indication: NAUSEA
  21. FOLFOX-6 [Concomitant]
     Indication: COLON NEOPLASM

REACTIONS (8)
  - ANALGESIC THERAPY [None]
  - BLOOD IRON DECREASED [None]
  - ECCHYMOSIS [None]
  - FALL [None]
  - HAEMATOMA [None]
  - HAEMOGLOBIN DECREASED [None]
  - PHYSICAL DISABILITY [None]
  - THROMBOPHLEBITIS [None]
